FAERS Safety Report 20375657 (Version 1)
Quarter: 2022Q1

REPORT INFORMATION
  Report Type: Spontaneous
  Country: US (occurrence: US)
  Receive Date: 20220125
  Receipt Date: 20220125
  Transmission Date: 20220423
  Serious: No
  Sender: FDA-Public Use
  Company Number: US-ANTARES PHARMA, INC.-2021-SPO-SU-0622

PATIENT

DRUGS (1)
  1. SUMATRIPTAN [Suspect]
     Active Substance: SUMATRIPTAN
     Indication: Migraine
     Dosage: 4 MILLIGRAM, QMONTH
     Route: 058
     Dates: start: 20210216

REACTIONS (6)
  - Nausea [Unknown]
  - Feeling hot [Unknown]
  - Vision blurred [Unknown]
  - Throat irritation [Unknown]
  - Ear discomfort [Unknown]
  - Dyspnoea [Not Recovered/Not Resolved]

NARRATIVE: CASE EVENT DATE: 20210216
